FAERS Safety Report 8040831-2 (Version None)
Quarter: 2012Q1

REPORT INFORMATION
  Report Type: 
  Country: None (occurrence: None)
  Receive Date: 20120112
  Receipt Date: 20120102
  Transmission Date: 20120608
  Serious: Yes (Other)
  Sender: FDA-Public Use
  Company Number: JP-ACCORD-011978

PATIENT
  Age: 37 Year
  Sex: Female

DRUGS (2)
  1. FLUOROURACIL [Suspect]
     Indication: RECTAL CANCER METASTATIC
     Dosage: HEPATIC ARTERIAL INFUSION
     Route: 013
  2. IRINOTECAN HCL [Suspect]
     Indication: RECTAL CANCER METASTATIC
     Dosage: HEPATIC ARTERIAL INFUSION
     Route: 013

REACTIONS (1)
  - HEPATIC ARTERY THROMBOSIS [None]
